FAERS Safety Report 15091268 (Version 1)
Quarter: 2018Q2

REPORT INFORMATION
  Report Type: Spontaneous
  Country: US (occurrence: US)
  Receive Date: 20180629
  Receipt Date: 20180629
  Transmission Date: 20180711
  Serious: No
  Sender: FDA-Public Use
  Company Number: US-AMGEN-USASP2015077283

PATIENT
  Age: 70 Year
  Sex: Female
  Weight: 46.26 kg

DRUGS (5)
  1. ARMOUR THYROID [Concomitant]
     Active Substance: THYROID, PORCINE
     Indication: HYPOTHYROIDISM
     Dosage: 30 MG, UNK
     Route: 048
  2. PROLIA [Suspect]
     Active Substance: DENOSUMAB
     Indication: OSTEOPOROSIS
     Dosage: 60 MG, Q6MO
     Route: 030
     Dates: start: 20111222
  3. GABAPENTIN. [Concomitant]
     Active Substance: GABAPENTIN
  4. DIFLUCAN [Concomitant]
     Active Substance: FLUCONAZOLE
     Indication: ONYCHOMYCOSIS
     Dosage: 200 MG, QWK
     Route: 048
  5. ESTRACE [Concomitant]
     Active Substance: ESTRADIOL
     Dosage: 1 MG, 1/2 TABLET 2 X WEEK
     Route: 048

REACTIONS (5)
  - Periodontal disease [Unknown]
  - Gingivitis [Unknown]
  - Tooth loss [Unknown]
  - Tooth disorder [Unknown]
  - Incorrect route of drug administration [Unknown]

NARRATIVE: CASE EVENT DATE: 20111222
